FAERS Safety Report 4356365-2 (Version None)
Quarter: 2004Q2

REPORT INFORMATION
  Report Type: 
  Country: None (occurrence: None)
  Receive Date: 20040506
  Receipt Date: 20040427
  Transmission Date: 20050107
  Serious: Yes (Hospitalization, Other)
  Sender: FDA-Public Use
  Company Number: HQWYE640029APR04

PATIENT
  Age: 56 Year
  Sex: Male
  Weight: 75.82 kg

DRUGS (6)
  1. RAPAMUNE [Suspect]
     Indication: PROPHYLAXIS AGAINST TRANSPLANT REJECTION
     Dosage: 4 MG 1 X PER 1 DAY, ORAL
     Route: 048
     Dates: start: 20040324
  2. PREDNISONE [Concomitant]
  3. NORVASC [Concomitant]
  4. NPH INSULIN [Concomitant]
  5. INSULIN [Concomitant]
  6. TACROLIMUS (TACROLIMUS) [Concomitant]

REACTIONS (7)
  - BLOOD PRESSURE INCREASED [None]
  - BODY TEMPERATURE DECREASED [None]
  - CHEST PAIN [None]
  - DYSPEPSIA [None]
  - DYSPNOEA [None]
  - HAEMOGLOBIN DECREASED [None]
  - WHITE BLOOD CELL COUNT DECREASED [None]
